FAERS Safety Report 23608681 (Version 2)
Quarter: 2024Q1

REPORT INFORMATION
  Report Type: Other
  Country: US (occurrence: None)
  Receive Date: 20240308
  Receipt Date: 20240320
  Transmission Date: 20240409
  Serious: Yes (Hospitalization)
  Sender: FDA-Public Use
  Company Number: US-ROCHE-3518440

PATIENT
  Age: 29 Year
  Sex: Male
  Weight: 66.6 kg

DRUGS (9)
  1. OCREVUS [Suspect]
     Active Substance: OCRELIZUMAB
     Indication: Relapsing-remitting multiple sclerosis
     Dosage: LAST OCREVUS INFUSION ON 28/SEP/2023,
     Route: 042
     Dates: start: 2022
  2. OCREVUS [Suspect]
     Active Substance: OCRELIZUMAB
     Route: 042
  3. INSULIN NOS [Concomitant]
     Active Substance: INSULIN NOS
     Indication: Type 1 diabetes mellitus
     Dosage: EVERY TIME I EAT AND EVERY TIME MY BLOOD SUGAR IS ELEVATED, AT LEAST 12 TIMES A?DAY ;ONGOING: YES
  4. IBUPROFEN [Concomitant]
     Active Substance: IBUPROFEN
  5. TYLENOL [Concomitant]
     Active Substance: ACETAMINOPHEN
  6. NAPROXEN [Concomitant]
     Active Substance: NAPROXEN
     Route: 065
  7. AVONEX [Concomitant]
     Active Substance: INTERFERON BETA-1A
  8. COPAXONE [Concomitant]
     Active Substance: GLATIRAMER ACETATE
  9. AUBAGIO [Concomitant]
     Active Substance: TERIFLUNOMIDE

REACTIONS (8)
  - Septic shock [Unknown]
  - Seizure [Recovered/Resolved]
  - Coordination abnormal [Not Recovered/Not Resolved]
  - Asthenia [Not Recovered/Not Resolved]
  - Visual impairment [Not Recovered/Not Resolved]
  - Rash [Unknown]
  - Illness [Not Recovered/Not Resolved]
  - Idiopathic intracranial hypertension [Unknown]

NARRATIVE: CASE EVENT DATE: 20230101
